FAERS Safety Report 15279855 (Version 3)
Quarter: 2019Q1

REPORT INFORMATION
  Report Type: Spontaneous
  Country: US (occurrence: US)
  Receive Date: 20180815
  Receipt Date: 20190213
  Transmission Date: 20190417
  Serious: Yes (Other)
  Sender: FDA-Public Use
  Company Number: US-PFIZER INC-2018325920

PATIENT
  Age: 54 Year
  Sex: Female

DRUGS (2)
  1. GABAPENTIN. [Suspect]
     Active Substance: GABAPENTIN
     Indication: CLUSTER HEADACHE
  2. GABAPENTIN. [Suspect]
     Active Substance: GABAPENTIN
     Indication: STATUS MIGRAINOSUS
     Dosage: UNK

REACTIONS (2)
  - Suicidal ideation [Unknown]
  - Drug ineffective for unapproved indication [Unknown]
